FAERS Safety Report 5441672-2 (Version None)
Quarter: 2007Q3

REPORT INFORMATION
  Report Type: 
  Country: None (occurrence: None)
  Receive Date: 20070829
  Receipt Date: 20070822
  Transmission Date: 20080115
  Serious: Yes (Hospitalization)
  Sender: FDA-Public Use
  Company Number: GRT 2007-12880

PATIENT
  Age: 67 Year
  Sex: Female
  Weight: 72 kg

DRUGS (11)
  1. LIDOCAINE [Suspect]
     Indication: POST HERPETIC NEURALGIA
     Dates: start: 20070702, end: 20070712
  2. PARACETAMOL [Concomitant]
  3. ENALAPRIL [Concomitant]
  4. TORSEMIDE [Concomitant]
  5. JUTALEX [Concomitant]
  6. ASPIRIN [Concomitant]
  7. RAMIPRIL [Concomitant]
  8. ESIDRIX [Concomitant]
  9. LYRICA [Concomitant]
  10. TILIDIN [Concomitant]
  11. TORSEMIDE [Concomitant]

REACTIONS (2)
  - MENTAL DISORDER DUE TO A GENERAL MEDICAL CONDITION [None]
  - SPEECH DISORDER [None]
